FAERS Safety Report 21873345 (Version 1)
Quarter: 2023Q1

REPORT INFORMATION
  Report Type: Report from Study
  Country: US (occurrence: US)
  Receive Date: 20230117
  Receipt Date: 20230117
  Transmission Date: 20230418
  Serious: No
  Sender: FDA-Public Use
  Company Number: US-ABBVIE-4273358

PATIENT
  Sex: Female

DRUGS (1)
  1. VENCLEXTA [Suspect]
     Active Substance: VENETOCLAX
     Indication: Myelodysplastic syndrome unclassifiable
     Dosage: 100MG DAILY FOR 14 DAYS ON, THEN 14 DAYS OFF AND PATIENT REMAINS ON THIS DOSAGE
     Route: 048
     Dates: start: 20221117

REACTIONS (3)
  - Liver disorder [Unknown]
  - Laboratory test abnormal [Unknown]
  - Adverse drug reaction [Unknown]
